FAERS Safety Report 6590759-X (Version None)
Quarter: 2010Q1

REPORT INFORMATION
  Report Type: 
  Country: None (occurrence: None)
  Receive Date: 20100204
  Receipt Date: 20090909
  Transmission Date: 20100710
  Serious: No
  Sender: FDA-Public Use
  Company Number: 2009-00641

PATIENT
  Age: 35 Year
  Sex: Male
  Weight: 92.9874 kg

DRUGS (1)
  1. ZICAM COLD REMEDY NASAL GEL [Suspect]
     Dosage: QID - SPORADIC USE; 2 YEARS AGO
     Dates: end: 20090501

REACTIONS (2)
  - AGEUSIA [None]
  - ANOSMIA [None]
